FAERS Safety Report 24635219 (Version 1)
Quarter: 2024Q4

REPORT INFORMATION
  Report Type: Spontaneous
  Country: US (occurrence: US)
  Receive Date: 20241119
  Receipt Date: 20241119
  Transmission Date: 20250115
  Serious: No
  Sender: AMNEAL
  Company Number: US-AMNEAL PHARMACEUTICALS-2024-AMRX-00277

PATIENT
  Age: 28 Year

DRUGS (1)
  1. ISOTRETINOIN [Suspect]
     Active Substance: ISOTRETINOIN
     Indication: Product used for unknown indication
     Dosage: 30 MILLIGRAM
     Route: 065
     Dates: start: 20240107, end: 20240122

REACTIONS (4)
  - Affective disorder [Unknown]
  - Bipolar disorder [Unknown]
  - Emotional disorder [Unknown]
  - Depressive symptom [Unknown]

NARRATIVE: CASE EVENT DATE: 20240106
